FAERS Safety Report 9567772 (Version 2)
Quarter: 2013Q3

REPORT INFORMATION
  Report Type: Spontaneous
  Country: US (occurrence: US)
  Receive Date: 20130930
  Receipt Date: 20130930
  Transmission Date: 20140515
  Serious: No
  Sender: FDA-Public Use
  Company Number: US-AMGEN-USASP2013015162

PATIENT
  Age: 51 Year
  Sex: Male
  Weight: 93.15 kg

DRUGS (1)
  1. ENBREL [Suspect]
     Indication: ARTHRITIS
     Dosage: 50 MG, QWK
     Dates: start: 20130131

REACTIONS (3)
  - Headache [Recovered/Resolved]
  - Dysphonia [Recovered/Resolved]
  - Paranasal sinus hypersecretion [Recovered/Resolved]
